FAERS Safety Report 9274417 (Version 1)
Quarter: 2013Q2

REPORT INFORMATION
  Report Type: Spontaneous
  Country: US (occurrence: US)
  Receive Date: 20130506
  Receipt Date: 20130506
  Transmission Date: 20140414
  Serious: Yes (Other)
  Sender: FDA-Public Use
  Company Number: US-BAYER-2013-056729

PATIENT
  Sex: Female

DRUGS (6)
  1. ALKA-SELTZER PLUS ALLERGY TABLETS [Suspect]
     Dosage: 2 DF, QD, FOR THE LAST WEEK
  2. METFORMIN [Concomitant]
  3. CYMBALTA [Concomitant]
  4. DEXILANT [Concomitant]
  5. GABAPENTIN [Concomitant]
  6. XANAX [Concomitant]

REACTIONS (6)
  - Vomiting [None]
  - Hypersensitivity [Not Recovered/Not Resolved]
  - Pruritus generalised [Not Recovered/Not Resolved]
  - Feeling hot [Not Recovered/Not Resolved]
  - Generalised erythema [Not Recovered/Not Resolved]
  - Urticaria [Not Recovered/Not Resolved]
